FAERS Safety Report 9668854 (Version 3)
Quarter: 2014Q2

REPORT INFORMATION
  Report Type: Spontaneous
  Country: CN (occurrence: CN)
  Receive Date: 20131105
  Receipt Date: 20140515
  Transmission Date: 20141212
  Serious: Yes (Hospitalization)
  Sender: FDA-Public Use
  Company Number: PHHY2013CN124446

PATIENT
  Age: 66 Year
  Sex: Female

DRUGS (1)
  1. LESCOL [Suspect]
     Indication: HYPERLIPIDAEMIA
     Dosage: 40 MG, ONCE DAILY
     Route: 048
     Dates: start: 20131018, end: 20131024

REACTIONS (4)
  - Asthenia [Unknown]
  - Nephropathy [Unknown]
  - Nephrotic syndrome [Unknown]
  - Hypoaesthesia [Unknown]
